FAERS Safety Report 9321510 (Version 1)
Quarter: 2013Q2

REPORT INFORMATION
  Report Type: Spontaneous
  Country: US (occurrence: None)
  Receive Date: 20130528
  Receipt Date: 20130528
  Transmission Date: 20140414
  Serious: Yes (Hospitalization, Other)
  Sender: FDA-Public Use
  Company Number: 1305-668

PATIENT
  Age: 77 Year
  Sex: Male

DRUGS (13)
  1. EYLEA (AFLIBERCEPT) (INJECTION) (AFLIBERCEPT) [Suspect]
     Indication: AGE-RELATED MACULAR DEGENERATION
     Dosage: 2 MG, 1 IN 6 WK, INTRAVITREAL
  2. LUMIGAN OU (BIMATOPROST) [Concomitant]
  3. ALLERGY EXTRACT (ALLERGY MEDICATION) [Concomitant]
  4. MONTELUKAST [Concomitant]
  5. SIMVASTATIN (SIMVASTATIN) [Concomitant]
  6. VITAMIN D3 (COLECALCIFEROL) [Concomitant]
  7. LOSARTAN (LOSARTAN) [Concomitant]
  8. CHROMIUM (CHROMIUM) [Concomitant]
  9. REJUVICARE (COLLAGEN} [Concomitant]
  10. FISH OIL (SUPPLEMENT (FISH OIL) [Concomitant]
  11. PALMETTO CAPSULE (SERENOA REPENS) [Concomitant]
  12. ASA (ACETYLSALICYLIC ACID) [Concomitant]
  13. VITAMINS [Concomitant]

REACTIONS (3)
  - Choroiditis [None]
  - Transient ischaemic attack [None]
  - Visual acuity reduced [None]
